FAERS Safety Report 8366203-9 (Version None)
Quarter: 2012Q2

REPORT INFORMATION
  Report Type: 
  Country: None (occurrence: None)
  Receive Date: 20120517
  Receipt Date: 20120509
  Transmission Date: 20120825
  Serious: Yes (Life-Threatening)
  Sender: FDA-Public Use
  Company Number: JP-ASTELLAS-2012US004705

PATIENT
  Age: 67 Year
  Sex: Female

DRUGS (10)
  1. MEROPENEM [Suspect]
     Indication: PSOAS ABSCESS
     Dosage: 1 G, UID/QD
     Route: 042
     Dates: start: 20120411, end: 20120420
  2. AMBISOME [Suspect]
     Indication: DEVICE RELATED INFECTION
     Dosage: UNK
     Route: 042
     Dates: start: 20120425, end: 20120504
  3. MEROPENEM [Suspect]
     Dosage: 2 G, UID/QD
     Route: 042
     Dates: start: 20120427, end: 20120506
  4. PRODIF [Suspect]
     Indication: PRODUCT USED FOR UNKNOWN INDICATION
     Dosage: UNK
     Route: 042
  5. MEROPENEM [Suspect]
     Indication: MENINGITIS BACTERIAL
     Dosage: 0.5 G, UID/QD
     Route: 042
     Dates: start: 20120117, end: 20120216
  6. VANCOMYCIN HYDROCHLORIDE [Suspect]
     Indication: PRODUCT USED FOR UNKNOWN INDICATION
     Dosage: 0.5 MG, UID/QD
     Route: 065
     Dates: start: 20120206, end: 20120215
  7. VANCOMYCIN HYDROCHLORIDE [Suspect]
     Dosage: UNK
     Route: 065
     Dates: start: 20120427
  8. CLINDAMYCIN PHOSPHATE [Suspect]
     Indication: PRODUCT USED FOR UNKNOWN INDICATION
     Dosage: 240 MG, UID/QD
     Route: 065
     Dates: start: 20120411, end: 20120506
  9. BUPRENORPHINE HCL [Suspect]
     Indication: PRODUCT USED FOR UNKNOWN INDICATION
     Dosage: UNK
     Route: 065
  10. VANCOMYCIN HYDROCHLORIDE [Suspect]
     Dosage: 0.5 MG, UID/QD
     Route: 065
     Dates: start: 20120309, end: 20120409

REACTIONS (2)
  - DRUG ERUPTION [None]
  - TOXIC EPIDERMAL NECROLYSIS [None]
